FAERS Safety Report 9164465 (Version 1)
Quarter: 2013Q1

REPORT INFORMATION
  Report Type: Spontaneous
  Country: US (occurrence: US)
  Receive Date: 20130315
  Receipt Date: 20130315
  Transmission Date: 20140127
  Serious: Yes (Other)
  Sender: FDA-Public Use
  Company Number: US-BAYER-2013-031538

PATIENT
  Age: 35 Year
  Sex: Female

DRUGS (1)
  1. MIRENA [Suspect]
     Indication: CONTRACEPTION
     Dosage: 20 MCG/24HR, CONT
     Route: 015
     Dates: start: 20120127, end: 20130225

REACTIONS (12)
  - Pelvic pain [None]
  - Dyspareunia [None]
  - Pelvic pain [None]
  - Nausea [None]
  - Influenza like illness [None]
  - Influenza like illness [None]
  - Malaise [None]
  - Ovarian cyst [None]
  - Ovarian cyst ruptured [None]
  - Vomiting [None]
  - Retching [None]
  - Nausea [None]
